FAERS Safety Report 7867959-1 (Version None)
Quarter: 2011Q4

REPORT INFORMATION
  Report Type: 
  Country: None (occurrence: None)
  Receive Date: 20111028
  Receipt Date: 20111021
  Transmission Date: 20120403
  Serious: No
  Sender: FDA-Public Use
  Company Number: US-B.I. PHARMACEUTICALS,INC./RIDGEFIELD-2011-BP-24820BP

PATIENT
  Sex: Female

DRUGS (5)
  1. LANOXIN [Concomitant]
  2. MICARDIS HCT [Suspect]
     Indication: HYPERTENSION
     Route: 048
     Dates: start: 20090101
  3. AMLODIPINE [Concomitant]
  4. SYNTHROID [Concomitant]
  5. ASPIRIN [Concomitant]

REACTIONS (2)
  - HAIR GROWTH ABNORMAL [None]
  - ALOPECIA [None]
